FAERS Safety Report 5767463-0 (Version None)
Quarter: 2008Q2

REPORT INFORMATION
  Report Type: 
  Country: None (occurrence: None)
  Receive Date: 20080611
  Receipt Date: 20080611
  Transmission Date: 20081010
  Serious: No
  Sender: FDA-Public Use
  Company Number: None

PATIENT
  Age: 86 Year
  Sex: Male
  Weight: 80 kg

DRUGS (2)
  1. COUMADIN [Suspect]
  2. ALEVE [Suspect]

REACTIONS (1)
  - GASTROINTESTINAL HAEMORRHAGE [None]
